FAERS Safety Report 5447814-7 (Version None)
Quarter: 2007Q3

REPORT INFORMATION
  Report Type: 
  Country: None (occurrence: None)
  Receive Date: 20070910
  Receipt Date: 20070829
  Transmission Date: 20080115
  Serious: Yes (Other)
  Sender: FDA-Public Use
  Company Number: US-PFIZER INC-2007073685

PATIENT
  Sex: Female
  Weight: 51.7 kg

DRUGS (3)
  1. CHANTIX [Suspect]
     Indication: SMOKING CESSATION THERAPY
  2. CLARITIN-D [Concomitant]
  3. VITAMIN CAP [Concomitant]

REACTIONS (7)
  - ARTHROPOD STING [None]
  - BLOOD PRESSURE INCREASED [None]
  - CONTUSION [None]
  - HEADACHE [None]
  - INJURY [None]
  - PRURITUS [None]
  - VEIN DISORDER [None]
